FAERS Safety Report 5534090-X (Version None)
Quarter: 2007Q4

REPORT INFORMATION
  Report Type: 
  Country: None (occurrence: None)
  Receive Date: 20071129
  Receipt Date: 20071129
  Transmission Date: 20080405
  Serious: Yes (Death, Hospitalization)
  Sender: FDA-Public Use
  Company Number: None

PATIENT
  Age: 74 Year
  Sex: Male
  Weight: 78.9259 kg

DRUGS (3)
  1. CETUXIMAB 100MG/50ML IMCLONE/BRISTOL MYERS SQUIBB [Suspect]
     Indication: LUNG ADENOCARCINOMA
     Dosage: 488 MG WEEKLY IV DRIP
     Route: 041
     Dates: start: 20071011, end: 20071109
  2. CETUXIMAB 100MG/50ML IMCLONE/BRISTOL MYERS SQUIBB [Suspect]
     Indication: METASTASES TO BONE
     Dosage: 488 MG WEEKLY IV DRIP
     Route: 041
     Dates: start: 20071011, end: 20071109
  3. CETUXIMAB 100MG/50ML IMCLONE/BRISTOL MYERS SQUIBB [Suspect]
     Indication: METASTASES TO LIVER
     Dosage: 488 MG WEEKLY IV DRIP
     Route: 041
     Dates: start: 20071011, end: 20071109

REACTIONS (12)
  - ABASIA [None]
  - ASTHENIA [None]
  - BILIARY DILATATION [None]
  - BLOOD CALCIUM DECREASED [None]
  - BLOOD CREATININE INCREASED [None]
  - BLOOD SODIUM DECREASED [None]
  - BLOOD UREA INCREASED [None]
  - DISEASE PROGRESSION [None]
  - LUNG NEOPLASM MALIGNANT [None]
  - METASTASES TO BONE [None]
  - METASTASES TO LYMPH NODES [None]
  - PLEURAL EFFUSION [None]
